FAERS Safety Report 17857914 (Version 1)
Quarter: 2020Q2

REPORT INFORMATION
  Report Type: Spontaneous
  Country: NL (occurrence: NL)
  Receive Date: 20200604
  Receipt Date: 20200604
  Transmission Date: 20200714
  Serious: Yes (Death)
  Sender: FDA-Public Use
  Company Number: NL-TEVA-2020-NL-1243354

PATIENT
  Sex: Male

DRUGS (1)
  1. SILDENAFIL TEVA 20 MG, FILMOMHULDE TABLETTEN [Suspect]
     Active Substance: SILDENAFIL
     Indication: PULMONARY ARTERIAL HYPERTENSION
     Dosage: 60 MILLIGRAM DAILY; CURRENT PRESCRIPTION PERIOD: 24-SEP-2019 TO 03-OCT-2020
     Route: 048

REACTIONS (1)
  - Death [Fatal]
